FAERS Safety Report 8838390 (Version 3)
Quarter: 2013Q1

REPORT INFORMATION
  Report Type: Spontaneous
  Country: IT (occurrence: IT)
  Receive Date: 20121012
  Receipt Date: 20130109
  Transmission Date: 20140127
  Serious: Yes (Congenital Anomaly, Other)
  Sender: FDA-Public Use
  Company Number: PHHY2012IT088050

PATIENT
  Sex: 0

DRUGS (3)
  1. LORAZEPAM [Suspect]
     Dosage: 0.5 MG MATERNAL
     Route: 064
  2. ANAFRANIL [Suspect]
     Dosage: 1 DF MATERNAL
     Route: 064
  3. TRILAFON [Suspect]
     Dosage: 2 MG MATERNAL
     Route: 064

REACTIONS (2)
  - Cleft palate [Unknown]
  - Foetal exposure during pregnancy [Unknown]
